FAERS Safety Report 6707971-9 (Version None)
Quarter: 2010Q2

REPORT INFORMATION
  Report Type: 
  Country: None (occurrence: None)
  Receive Date: 20100503
  Receipt Date: 20100331
  Transmission Date: 20101027
  Serious: Yes (Death, Other)
  Sender: FDA-Public Use
  Company Number: US-BAXTER-2010BH000929

PATIENT
  Age: 76 Year
  Sex: Male

DRUGS (15)
  1. HEPARIN SODIUM INJECTION [Suspect]
     Indication: HAEMODIALYSIS
     Route: 042
     Dates: start: 20080103, end: 20080105
  2. HEPARIN SODIUM INJECTION [Suspect]
     Route: 042
     Dates: start: 20080108, end: 20080108
  3. HEPARIN SODIUM INJECTION [Suspect]
     Route: 042
     Dates: start: 20080110, end: 20080110
  4. HEPARIN SODIUM INJECTION [Suspect]
     Route: 042
     Dates: start: 20080101
  5. HEPARIN SODIUM INJECTION [Suspect]
     Route: 042
     Dates: start: 20080101
  6. HEPARIN SODIUM INJECTION [Suspect]
     Route: 042
     Dates: start: 20080101
  7. METOPROLOL [Concomitant]
     Indication: DRUG USE FOR UNKNOWN INDICATION
     Route: 065
  8. SIMVASTATIN [Concomitant]
     Indication: DRUG USE FOR UNKNOWN INDICATION
     Route: 065
  9. HYTRIN [Concomitant]
     Indication: DRUG USE FOR UNKNOWN INDICATION
     Route: 065
  10. PRILOCAINE HYDROCHLORIDE [Concomitant]
     Indication: DRUG USE FOR UNKNOWN INDICATION
     Route: 061
  11. MUPIROCIN [Concomitant]
     Indication: DRUG USE FOR UNKNOWN INDICATION
     Route: 061
  12. FINASTERIDE [Concomitant]
     Indication: DRUG USE FOR UNKNOWN INDICATION
     Route: 065
  13. VITAMIN E [Concomitant]
     Indication: DRUG USE FOR UNKNOWN INDICATION
     Route: 065
  14. VITAMIN C [Concomitant]
     Indication: DRUG USE FOR UNKNOWN INDICATION
     Route: 065
  15. ALOES [Concomitant]
     Indication: DRUG USE FOR UNKNOWN INDICATION
     Route: 048

REACTIONS (4)
  - CEREBRAL HAEMORRHAGE [None]
  - CONVULSION [None]
  - HAEMORRHAGE [None]
  - HYPOTENSION [None]
